FAERS Safety Report 10456490 (Version 1)
Quarter: 2014Q3

REPORT INFORMATION
  Report Type: Spontaneous
  Country: US (occurrence: None)
  Receive Date: 20140822
  Receipt Date: 20140822
  Transmission Date: 20150326
  Serious: Yes (Other)
  Sender: FDA-Public Use
  Company Number: 2014SUN01233

PATIENT
  Age: 69 Year
  Sex: Male
  Weight: 63 kg

DRUGS (13)
  1. ATORVASTATIN (ATORVASTATIN) [Concomitant]
     Active Substance: ATORVASTATIN
  2. COREG [Concomitant]
     Active Substance: CARVEDILOL
  3. LANTUS (INUSLIN GLARGINE) [Concomitant]
  4. AMOXICILLIN (AMOXICILLIN) [Concomitant]
     Active Substance: AMOXICILLIN
  5. IBANDRONAE (IBANDRONATE SODIUM) [Concomitant]
  6. ASPIRIN (ACETYLALICYLIC ACID) [Concomitant]
  7. BASILIXIMAB [Suspect]
     Active Substance: BASILIXIMAB
     Indication: RENAL TRANSPLANT
     Dosage: 20 MG, TWO DOSES, INTRAVENOUS
     Route: 042
     Dates: start: 20130923, end: 20130926
  8. TACROLIMUS. [Suspect]
     Active Substance: TACROLIMUS
     Indication: RENAL TRANSPLANT
     Route: 048
     Dates: start: 20131217, end: 20140128
  9. BACTRIM [Suspect]
     Active Substance: SULFAMETHOXAZOLE\TRIMETHOPRIM
     Indication: PRODUCT USED FOR UNKNOWN INDICATION
     Dosage: 1 DF, 3 DOSE/WEEK, ORAL
     Route: 048
     Dates: start: 20131003, end: 20140127
  10. MYCOPHENOLATE MOFETIL (MYCOPHENOLATE MOFETIL) [Suspect]
     Active Substance: MYCOPHENOLATE MOFETIL
     Indication: RENAL TRANSPLANT
     Route: 048
     Dates: start: 20130123, end: 20140127
  11. HUMALOG [Concomitant]
     Active Substance: INSULIN LISPRO
  12. PREDNISONE (PREDNISONE) [Concomitant]
     Active Substance: PREDNISONE
  13. PEPCID [Concomitant]
     Active Substance: FAMOTIDINE

REACTIONS (1)
  - Neutropenia [None]

NARRATIVE: CASE EVENT DATE: 20140127
